FAERS Safety Report 5019156-5 (Version None)
Quarter: 2006Q2

REPORT INFORMATION
  Report Type: 
  Country: None (occurrence: None)
  Receive Date: 20060531
  Receipt Date: 20060517
  Transmission Date: 20061013
  Serious: Yes (Hospitalization)
  Sender: FDA-Public Use
  Company Number: 2006S1000101

PATIENT
  Age: 76 Year
  Sex: Male
  Weight: 80 kg

DRUGS (9)
  1. CUBICIN [Suspect]
     Indication: OSTEOMYELITIS
     Dosage: 350 MG; Q24H; IV
     Route: 042
     Dates: start: 20040806, end: 20040916
  2. ACETYLSALICYLIC ACID SRT [Concomitant]
  3. TOPROL-XL [Concomitant]
  4. VASOTEC [Concomitant]
  5. WARFARIN SODIUM [Concomitant]
  6. MICRONASE [Concomitant]
  7. SULFASALAZINE [Concomitant]
  8. PRILOSEC [Concomitant]
  9. MULTI-VITAMIN [Concomitant]

REACTIONS (9)
  - AORTIC VALVE SCLEROSIS [None]
  - ATRIAL FIBRILLATION [None]
  - CARDIAC FAILURE CONGESTIVE [None]
  - CREATINE PHOSPHOKINASE DECREASED [None]
  - DISEASE RECURRENCE [None]
  - EJECTION FRACTION DECREASED [None]
  - HAEMATOCRIT DECREASED [None]
  - HYPERKALAEMIA [None]
  - VENTRICULAR HYPERTROPHY [None]
